FAERS Safety Report 24209974 (Version 1)
Quarter: 2024Q3

REPORT INFORMATION
  Report Type: Spontaneous
  Country: US (occurrence: US)
  Receive Date: 20240814
  Receipt Date: 20240814
  Transmission Date: 20241016
  Serious: No
  Sender: SANOFI AVENTIS
  Company Number: US-SA-SAC20240813000262

PATIENT
  Age: 10 Year
  Sex: Male

DRUGS (8)
  1. DUPIXENT [Suspect]
     Active Substance: DUPILUMAB
     Indication: Eosinophilic oesophagitis
     Dosage: 300 MG, QW
     Route: 058
  2. BUDESONIDE [Concomitant]
     Active Substance: BUDESONIDE
  3. ONDANSETRON [Concomitant]
     Active Substance: ONDANSETRON
  4. OSELTAMIVIR [Concomitant]
     Active Substance: OSELTAMIVIR
  5. RIZATRIPTAN [Concomitant]
     Active Substance: RIZATRIPTAN
  6. VALTOCO [Concomitant]
     Active Substance: DIAZEPAM
  7. ZONISAMIDE [Concomitant]
     Active Substance: ZONISAMIDE
  8. FERROUS SULFATE [Concomitant]
     Active Substance: FERROUS SULFATE

REACTIONS (2)
  - Dysphagia [Unknown]
  - Impaired quality of life [Unknown]

NARRATIVE: CASE EVENT DATE: 20240731
